FAERS Safety Report 7934863-X (Version None)
Quarter: 2011Q4

REPORT INFORMATION
  Report Type: 
  Country: None (occurrence: None)
  Receive Date: 20111122
  Receipt Date: 20111109
  Transmission Date: 20120403
  Serious: No
  Sender: FDA-Public Use
  Company Number: US-B.I. PHARMACEUTICALS,INC./RIDGEFIELD-2011-BP-24087BP

PATIENT
  Age: 74 Year
  Sex: Male

DRUGS (6)
  1. PRADAXA [Suspect]
     Route: 048
     Dates: start: 20111028
  2. VITAMIN TAB [Concomitant]
  3. PRADAXA [Suspect]
     Indication: ATRIAL FIBRILLATION
     Dosage: 300 MG
     Route: 048
     Dates: start: 20110601, end: 20110801
  4. PRADAXA [Suspect]
     Dosage: 150 MG
     Route: 048
     Dates: start: 20110817, end: 20111008
  5. DIOVAN [Concomitant]
     Indication: HYPERTENSION
     Route: 048
  6. TYLENOL-500 [Concomitant]

REACTIONS (3)
  - NECK PAIN [None]
  - MUSCULOSKELETAL PAIN [None]
  - PAIN [None]
